FAERS Safety Report 4893455-X (Version None)
Quarter: 2006Q1

REPORT INFORMATION
  Report Type: 
  Country: None (occurrence: None)
  Receive Date: 20060124
  Receipt Date: 20060117
  Transmission Date: 20060701
  Serious: Yes (Other)
  Sender: FDA-Public Use
  Company Number: 2005169747

PATIENT
  Sex: Male

DRUGS (1)
  1. VIAGRA [Suspect]
     Indication: ILL-DEFINED DISORDER

REACTIONS (4)
  - IMPRISONMENT [None]
  - PHARMACEUTICAL PRODUCT COMPLAINT [None]
  - SEXUAL ABUSE [None]
  - VISION BLURRED [None]
